FAERS Safety Report 14776134 (Version 1)
Quarter: 2018Q2

REPORT INFORMATION
  Report Type: Spontaneous
  Country: US (occurrence: US)
  Receive Date: 20180418
  Receipt Date: 20180418
  Transmission Date: 20180711
  Serious: Yes (Hospitalization)
  Sender: FDA-Public Use
  Company Number: US-LUNDBECK-DKLU2046030

PATIENT
  Age: 1 Year
  Sex: Male
  Weight: 11 kg

DRUGS (1)
  1. SABRIL [Suspect]
     Active Substance: VIGABATRIN
     Indication: INFANTILE SPASMS
     Route: 048
     Dates: start: 20171006

REACTIONS (2)
  - Influenza [Unknown]
  - Hypothermia [Unknown]

NARRATIVE: CASE EVENT DATE: 20180316
